FAERS Safety Report 25318728 (Version 1)
Quarter: 2025Q2

REPORT INFORMATION
  Report Type: Spontaneous
  Country: US (occurrence: US)
  Receive Date: 20250515
  Receipt Date: 20250515
  Transmission Date: 20250717
  Serious: Yes (Other)
  Sender: INSUD PHARMA
  Company Number: US-INSUD PHARMA-2505US03581

PATIENT

DRUGS (1)
  1. SLYND [Suspect]
     Active Substance: DROSPIRENONE
     Indication: Heavy menstrual bleeding
     Route: 048
     Dates: start: 202409

REACTIONS (3)
  - Suicidal ideation [Unknown]
  - Depression [Not Recovered/Not Resolved]
  - Product use in unapproved indication [Unknown]

NARRATIVE: CASE EVENT DATE: 20240101
